FAERS Safety Report 24356483 (Version 1)
Quarter: 2024Q3

REPORT INFORMATION
  Report Type: Spontaneous
  Country: AU (occurrence: AU)
  Receive Date: 20240924
  Receipt Date: 20240924
  Transmission Date: 20241017
  Serious: Yes (Hospitalization)
  Sender: SANDOZ
  Company Number: None

PATIENT
  Age: 36 Year
  Sex: Female

DRUGS (22)
  1. ALLOPURINOL [Suspect]
     Active Substance: ALLOPURINOL
     Indication: Lymphoma
     Dosage: 300 MG
     Route: 048
     Dates: start: 20231019, end: 20231103
  2. ASPIRIN [Suspect]
     Active Substance: ASPIRIN
     Indication: Product used for unknown indication
     Dosage: UNK
     Route: 065
  3. CYCLOPHOSPHAMIDE [Suspect]
     Active Substance: CYCLOPHOSPHAMIDE
     Indication: Primary mediastinal large B-cell lymphoma
     Dosage: 1300 MG
     Route: 042
     Dates: start: 20231206, end: 20240320
  4. DOXORUBICIN HYDROCHLORIDE [Suspect]
     Active Substance: DOXORUBICIN HYDROCHLORIDE
     Indication: Primary mediastinal large B-cell lymphoma
     Dosage: 88 MG
     Route: 042
     Dates: start: 20231206, end: 20240320
  5. PEMBROLIZUMAB [Suspect]
     Active Substance: PEMBROLIZUMAB
     Indication: Primary mediastinal large B-cell lymphoma
     Dosage: 200 MG
     Route: 042
     Dates: start: 20231027, end: 20240320
  6. PREDNISOLONE [Suspect]
     Active Substance: PREDNISOLONE
     Indication: Primary mediastinal large B-cell lymphoma
     Dosage: 100 MG
     Route: 048
     Dates: start: 20231206, end: 20240320
  7. RITUXIMAB [Suspect]
     Active Substance: RITUXIMAB
     Indication: Primary mediastinal large B-cell lymphoma
     Dosage: 650 MG
     Route: 042
     Dates: start: 20231027
  8. RITUXIMAB [Suspect]
     Active Substance: RITUXIMAB
     Dosage: 660 MG
     Route: 042
     Dates: start: 20240320
  9. VINCRISTINE SULFATE [Suspect]
     Active Substance: VINCRISTINE SULFATE
     Dosage: 1 MG
     Route: 042
     Dates: start: 202312, end: 20231227
  10. VINCRISTINE SULFATE [Suspect]
     Active Substance: VINCRISTINE SULFATE
     Indication: Primary mediastinal large B-cell lymphoma
     Dosage: 2 MG
     Route: 065
     Dates: start: 20231206, end: 202312
  11. BACTRIM DS [Concomitant]
     Active Substance: SULFAMETHOXAZOLE\TRIMETHOPRIM
     Indication: Prophylaxis
     Dosage: UNK
     Route: 048
     Dates: start: 20231027, end: 20231103
  12. HYDROCORTISONE [Concomitant]
     Active Substance: HYDROCORTISONE\HYDROCORTISONE ACETATE
     Indication: Prophylaxis
     Dosage: 100 MG
     Route: 042
     Dates: start: 20231027, end: 20231027
  13. LIDOCAINE [Concomitant]
     Active Substance: LIDOCAINE
     Indication: Proctalgia
     Route: 061
  14. MAGNESIUM ASPARTATE [Concomitant]
     Active Substance: MAGNESIUM ASPARTATE
     Indication: Routine health maintenance
     Dosage: 500 MG
     Route: 048
     Dates: start: 202310
  15. PANADOL [Concomitant]
     Active Substance: ACETAMINOPHEN
     Indication: Migraine
     Dosage: UNK
     Route: 048
     Dates: start: 202310
  16. PREDNISOLONE [Concomitant]
     Active Substance: PREDNISOLONE
     Dosage: 10 MG
     Route: 048
     Dates: start: 20231023
  17. PREDNISOLONE [Concomitant]
     Active Substance: PREDNISOLONE
     Indication: Lymphoma
     Dosage: 100 MG
     Route: 048
     Dates: start: 20231019, end: 20231025
  18. SODIUM CHLORIDE [Concomitant]
     Active Substance: SODIUM CHLORIDE
     Dosage: 250 MG
     Route: 042
     Dates: start: 20231027, end: 20231027
  19. SODIUM CHLORIDE [Concomitant]
     Active Substance: SODIUM CHLORIDE
     Indication: Fluid replacement
     Dosage: UNK
     Route: 042
     Dates: start: 20231027, end: 20231027
  20. TEMAZEPAM [Concomitant]
     Active Substance: TEMAZEPAM
     Indication: Prophylaxis
     Dosage: 5 MG
     Route: 048
     Dates: start: 20231026, end: 20231026
  21. VITAMIN D3 [Concomitant]
     Active Substance: CHOLECALCIFEROL
     Indication: Routine health maintenance
     Dosage: 125 UG
     Route: 048
     Dates: start: 202310
  22. ZINC [Concomitant]
     Active Substance: ZINC
     Indication: Routine health maintenance
     Dosage: 50 MG
     Route: 048
     Dates: start: 202310, end: 202311

REACTIONS (4)
  - Lymphocytic oesophagitis [Not Recovered/Not Resolved]
  - Febrile neutropenia [Recovered/Resolved]
  - Pyrexia [Recovered/Resolved]
  - Rash maculo-papular [Recovered/Resolved]

NARRATIVE: CASE EVENT DATE: 20240814
